FAERS Safety Report 4541801-9 (Version None)
Quarter: 2004Q4

REPORT INFORMATION
  Report Type: 
  Country: None (occurrence: None)
  Receive Date: 20041227
  Receipt Date: 20041221
  Transmission Date: 20050328
  Serious: Yes (Death, Hospitalization)
  Sender: FDA-Public Use
  Company Number: 430004E04USA

PATIENT
  Age: 52 Year
  Sex: Male

DRUGS (3)
  1. NOVANTRONE [Suspect]
     Indication: ACUTE MYELOID LEUKAEMIA
     Dates: start: 20041016, end: 20041022
  2. ETOPOSIDE [Suspect]
     Indication: ACUTE MYELOID LEUKAEMIA
     Dates: start: 20041016, end: 20041023
  3. CYTARABINE [Concomitant]

REACTIONS (18)
  - CELLULITIS [None]
  - CHILLS [None]
  - DIZZINESS POSTURAL [None]
  - DRUG INEFFECTIVE [None]
  - FACIAL PAIN [None]
  - FEBRILE NEUTROPENIA [None]
  - FUNGAEMIA [None]
  - HEADACHE [None]
  - LOBAR PNEUMONIA [None]
  - MARKEDLY REDUCED DIETARY INTAKE [None]
  - PANCYTOPENIA [None]
  - PERIODONTAL DISEASE [None]
  - PNEUMONIA FUNGAL [None]
  - REFUSAL OF TREATMENT BY PATIENT [None]
  - SINUS DISORDER [None]
  - STAPHYLOCOCCAL BACTERAEMIA [None]
  - SWELLING FACE [None]
  - TOOTH ABSCESS [None]
